FAERS Safety Report 22648983 (Version 4)
Quarter: 2025Q3

REPORT INFORMATION
  Report Type: Spontaneous
  Country: CA (occurrence: CA)
  Receive Date: 20230628
  Receipt Date: 20250911
  Transmission Date: 20251020
  Serious: Yes (Life-Threatening, Other)
  Sender: MYLAN
  Company Number: CA-MYLANLABS-2023M1065815

PATIENT
  Age: 33 Year
  Sex: Male

DRUGS (104)
  1. VENLAFAXINE [Suspect]
     Active Substance: VENLAFAXINE HYDROCHLORIDE
     Indication: Depression
  2. VENLAFAXINE [Suspect]
     Active Substance: VENLAFAXINE HYDROCHLORIDE
     Route: 065
  3. VENLAFAXINE [Suspect]
     Active Substance: VENLAFAXINE HYDROCHLORIDE
     Route: 065
  4. VENLAFAXINE [Suspect]
     Active Substance: VENLAFAXINE HYDROCHLORIDE
  5. VENLAFAXINE HYDROCHLORIDE [Suspect]
     Active Substance: VENLAFAXINE HYDROCHLORIDE
     Indication: Depression
     Dosage: 300 MILLIGRAM, QD (1 EVERY 1 DAYS)
     Route: 065
  6. VENLAFAXINE HYDROCHLORIDE [Suspect]
     Active Substance: VENLAFAXINE HYDROCHLORIDE
     Dosage: 300 MILLIGRAM, QD (1 EVERY 1 DAYS)
  7. VENLAFAXINE HYDROCHLORIDE [Suspect]
     Active Substance: VENLAFAXINE HYDROCHLORIDE
     Dosage: 300 MILLIGRAM, QD (1 EVERY 1 DAYS)
  8. VENLAFAXINE HYDROCHLORIDE [Suspect]
     Active Substance: VENLAFAXINE HYDROCHLORIDE
     Dosage: 300 MILLIGRAM, QD (1 EVERY 1 DAYS)
     Route: 065
  9. VENLAFAXINE HYDROCHLORIDE [Suspect]
     Active Substance: VENLAFAXINE HYDROCHLORIDE
     Route: 065
  10. VENLAFAXINE HYDROCHLORIDE [Suspect]
     Active Substance: VENLAFAXINE HYDROCHLORIDE
  11. VENLAFAXINE HYDROCHLORIDE [Suspect]
     Active Substance: VENLAFAXINE HYDROCHLORIDE
  12. VENLAFAXINE HYDROCHLORIDE [Suspect]
     Active Substance: VENLAFAXINE HYDROCHLORIDE
     Route: 065
  13. VENLAFAXINE HYDROCHLORIDE [Suspect]
     Active Substance: VENLAFAXINE HYDROCHLORIDE
     Route: 065
  14. VENLAFAXINE HYDROCHLORIDE [Suspect]
     Active Substance: VENLAFAXINE HYDROCHLORIDE
     Route: 065
  15. VENLAFAXINE HYDROCHLORIDE [Suspect]
     Active Substance: VENLAFAXINE HYDROCHLORIDE
  16. VENLAFAXINE HYDROCHLORIDE [Suspect]
     Active Substance: VENLAFAXINE HYDROCHLORIDE
  17. SERTRALINE [Suspect]
     Active Substance: SERTRALINE HYDROCHLORIDE
     Indication: Depression
     Dosage: UNK, QD (1 EVERY 1 DAYS)
  18. SERTRALINE [Suspect]
     Active Substance: SERTRALINE HYDROCHLORIDE
     Dosage: UNK, QD (1 EVERY 1 DAYS)
     Route: 065
  19. SERTRALINE [Suspect]
     Active Substance: SERTRALINE HYDROCHLORIDE
     Dosage: UNK, QD (1 EVERY 1 DAYS)
     Route: 065
  20. SERTRALINE [Suspect]
     Active Substance: SERTRALINE HYDROCHLORIDE
     Dosage: UNK, QD (1 EVERY 1 DAYS)
  21. OLANZAPINE [Suspect]
     Active Substance: OLANZAPINE
     Indication: Depression
     Dosage: 5 MILLIGRAM, QD (AT BEDTIME)
     Route: 065
  22. OLANZAPINE [Suspect]
     Active Substance: OLANZAPINE
     Dosage: 5 MILLIGRAM, QD (AT BEDTIME)
  23. OLANZAPINE [Suspect]
     Active Substance: OLANZAPINE
     Dosage: 5 MILLIGRAM, QD (AT BEDTIME)
  24. OLANZAPINE [Suspect]
     Active Substance: OLANZAPINE
     Dosage: 5 MILLIGRAM, QD (AT BEDTIME)
     Route: 065
  25. OLANZAPINE [Suspect]
     Active Substance: OLANZAPINE
     Route: 065
  26. OLANZAPINE [Suspect]
     Active Substance: OLANZAPINE
  27. OLANZAPINE [Suspect]
     Active Substance: OLANZAPINE
  28. OLANZAPINE [Suspect]
     Active Substance: OLANZAPINE
     Route: 065
  29. BUPROPION [Suspect]
     Active Substance: BUPROPION
     Indication: Depression
  30. BUPROPION [Suspect]
     Active Substance: BUPROPION
     Route: 065
  31. BUPROPION [Suspect]
     Active Substance: BUPROPION
     Route: 065
  32. BUPROPION [Suspect]
     Active Substance: BUPROPION
  33. MIRTAZAPINE [Suspect]
     Active Substance: MIRTAZAPINE
     Indication: Depression
     Dosage: 60 MILLIGRAM, QD (AT BEDTIME)
  34. MIRTAZAPINE [Suspect]
     Active Substance: MIRTAZAPINE
     Dosage: 60 MILLIGRAM, QD (AT BEDTIME)
  35. MIRTAZAPINE [Suspect]
     Active Substance: MIRTAZAPINE
     Dosage: 60 MILLIGRAM, QD (AT BEDTIME)
     Route: 065
  36. MIRTAZAPINE [Suspect]
     Active Substance: MIRTAZAPINE
     Dosage: 60 MILLIGRAM, QD (AT BEDTIME)
     Route: 065
  37. MIRTAZAPINE [Suspect]
     Active Substance: MIRTAZAPINE
     Dosage: 30 MILLIGRAM, QD (AT BEDTIME)
  38. MIRTAZAPINE [Suspect]
     Active Substance: MIRTAZAPINE
     Dosage: 30 MILLIGRAM, QD (AT BEDTIME)
  39. MIRTAZAPINE [Suspect]
     Active Substance: MIRTAZAPINE
     Dosage: 30 MILLIGRAM, QD (AT BEDTIME)
     Route: 065
  40. MIRTAZAPINE [Suspect]
     Active Substance: MIRTAZAPINE
     Dosage: 30 MILLIGRAM, QD (AT BEDTIME)
     Route: 065
  41. LEVOMILNACIPRAN [Suspect]
     Active Substance: LEVOMILNACIPRAN
     Indication: Depression
  42. LEVOMILNACIPRAN [Suspect]
     Active Substance: LEVOMILNACIPRAN
     Route: 065
  43. LEVOMILNACIPRAN [Suspect]
     Active Substance: LEVOMILNACIPRAN
     Route: 065
  44. LEVOMILNACIPRAN [Suspect]
     Active Substance: LEVOMILNACIPRAN
  45. BREXPIPRAZOLE [Suspect]
     Active Substance: BREXPIPRAZOLE
     Indication: Depression
  46. BREXPIPRAZOLE [Suspect]
     Active Substance: BREXPIPRAZOLE
     Route: 065
  47. BREXPIPRAZOLE [Suspect]
     Active Substance: BREXPIPRAZOLE
     Route: 065
  48. BREXPIPRAZOLE [Suspect]
     Active Substance: BREXPIPRAZOLE
  49. MOCLOBEMIDE [Suspect]
     Active Substance: MOCLOBEMIDE
     Indication: Depression
  50. MOCLOBEMIDE [Suspect]
     Active Substance: MOCLOBEMIDE
     Route: 065
  51. MOCLOBEMIDE [Suspect]
     Active Substance: MOCLOBEMIDE
     Route: 065
  52. MOCLOBEMIDE [Suspect]
     Active Substance: MOCLOBEMIDE
  53. LITHIUM [Suspect]
     Active Substance: LITHIUM
     Indication: Depression
     Dosage: 750 MILLIGRAM, QD (1 EVERY 1 DAY) (AT BEDTIME )
  54. LITHIUM [Suspect]
     Active Substance: LITHIUM
     Dosage: 750 MILLIGRAM, QD (1 EVERY 1 DAY) (AT BEDTIME )
  55. LITHIUM [Suspect]
     Active Substance: LITHIUM
     Dosage: 750 MILLIGRAM, QD (1 EVERY 1 DAY) (AT BEDTIME )
     Route: 065
  56. LITHIUM [Suspect]
     Active Substance: LITHIUM
     Dosage: 750 MILLIGRAM, QD (1 EVERY 1 DAY) (AT BEDTIME )
     Route: 065
  57. LITHIUM [Suspect]
     Active Substance: LITHIUM
  58. LITHIUM [Suspect]
     Active Substance: LITHIUM
  59. LITHIUM [Suspect]
     Active Substance: LITHIUM
     Route: 065
  60. LITHIUM [Suspect]
     Active Substance: LITHIUM
     Route: 065
  61. ARIPIPRAZOLE [Suspect]
     Active Substance: ARIPIPRAZOLE
     Indication: Depression
     Dosage: 5 MILLIGRAM, QD (1 EVERY 1 DAY)
     Route: 065
  62. ARIPIPRAZOLE [Suspect]
     Active Substance: ARIPIPRAZOLE
     Dosage: 5 MILLIGRAM, QD (1 EVERY 1 DAY)
  63. ARIPIPRAZOLE [Suspect]
     Active Substance: ARIPIPRAZOLE
     Dosage: 5 MILLIGRAM, QD (1 EVERY 1 DAY)
  64. ARIPIPRAZOLE [Suspect]
     Active Substance: ARIPIPRAZOLE
     Dosage: 5 MILLIGRAM, QD (1 EVERY 1 DAY)
     Route: 065
  65. ARIPIPRAZOLE [Suspect]
     Active Substance: ARIPIPRAZOLE
     Dosage: 5 MILLIGRAM, BID (1 EVERY 12 HOURS)
     Route: 065
  66. ARIPIPRAZOLE [Suspect]
     Active Substance: ARIPIPRAZOLE
     Dosage: 5 MILLIGRAM, BID (1 EVERY 12 HOURS)
  67. ARIPIPRAZOLE [Suspect]
     Active Substance: ARIPIPRAZOLE
     Dosage: 5 MILLIGRAM, BID (1 EVERY 12 HOURS)
  68. ARIPIPRAZOLE [Suspect]
     Active Substance: ARIPIPRAZOLE
     Dosage: 5 MILLIGRAM, BID (1 EVERY 12 HOURS)
     Route: 065
  69. KETAMINE [Suspect]
     Active Substance: KETAMINE
     Indication: Depression
  70. KETAMINE [Suspect]
     Active Substance: KETAMINE
     Route: 042
  71. KETAMINE [Suspect]
     Active Substance: KETAMINE
     Route: 042
  72. KETAMINE [Suspect]
     Active Substance: KETAMINE
  73. KETAMINE [Suspect]
     Active Substance: KETAMINE
     Indication: Depression
  74. KETAMINE [Suspect]
     Active Substance: KETAMINE
     Route: 042
  75. KETAMINE [Suspect]
     Active Substance: KETAMINE
     Route: 042
  76. KETAMINE [Suspect]
     Active Substance: KETAMINE
  77. LITHIUM CARBONATE [Suspect]
     Active Substance: LITHIUM CARBONATE
     Indication: Depression
  78. LITHIUM CARBONATE [Suspect]
     Active Substance: LITHIUM CARBONATE
     Route: 065
  79. LITHIUM CARBONATE [Suspect]
     Active Substance: LITHIUM CARBONATE
     Route: 065
  80. LITHIUM CARBONATE [Suspect]
     Active Substance: LITHIUM CARBONATE
  81. MIRTAZAPINE [Suspect]
     Active Substance: MIRTAZAPINE
     Indication: Depression
     Dosage: 30 MILLIGRAM, QD (1 EVERY 1 DAYS)
  82. MIRTAZAPINE [Suspect]
     Active Substance: MIRTAZAPINE
     Dosage: 30 MILLIGRAM, QD (1 EVERY 1 DAYS)
  83. MIRTAZAPINE [Suspect]
     Active Substance: MIRTAZAPINE
     Dosage: 30 MILLIGRAM, QD (1 EVERY 1 DAYS)
     Route: 065
  84. MIRTAZAPINE [Suspect]
     Active Substance: MIRTAZAPINE
     Dosage: 30 MILLIGRAM, QD (1 EVERY 1 DAYS)
     Route: 065
  85. MIRTAZAPINE [Suspect]
     Active Substance: MIRTAZAPINE
  86. MIRTAZAPINE [Suspect]
     Active Substance: MIRTAZAPINE
  87. MIRTAZAPINE [Suspect]
     Active Substance: MIRTAZAPINE
     Route: 065
  88. MIRTAZAPINE [Suspect]
     Active Substance: MIRTAZAPINE
     Route: 065
  89. MOCLOBEMIDE [Suspect]
     Active Substance: MOCLOBEMIDE
     Indication: Depression
     Dosage: 750 MILLIGRAM, QD (1 EVERY 1 DAYS)
  90. MOCLOBEMIDE [Suspect]
     Active Substance: MOCLOBEMIDE
     Dosage: 750 MILLIGRAM, QD (1 EVERY 1 DAYS)
     Route: 065
  91. MOCLOBEMIDE [Suspect]
     Active Substance: MOCLOBEMIDE
     Dosage: 750 MILLIGRAM, QD (1 EVERY 1 DAYS)
     Route: 065
  92. MOCLOBEMIDE [Suspect]
     Active Substance: MOCLOBEMIDE
     Dosage: 750 MILLIGRAM, QD (1 EVERY 1 DAYS)
  93. MIRTAZAPINE [Suspect]
     Active Substance: MIRTAZAPINE
     Indication: Depression
  94. MIRTAZAPINE [Suspect]
     Active Substance: MIRTAZAPINE
     Route: 065
  95. MIRTAZAPINE [Suspect]
     Active Substance: MIRTAZAPINE
     Route: 065
  96. MIRTAZAPINE [Suspect]
     Active Substance: MIRTAZAPINE
  97. SERTRALINE HYDROCHLORIDE [Suspect]
     Active Substance: SERTRALINE HYDROCHLORIDE
     Indication: Depression
  98. SERTRALINE HYDROCHLORIDE [Suspect]
     Active Substance: SERTRALINE HYDROCHLORIDE
     Route: 065
  99. SERTRALINE HYDROCHLORIDE [Suspect]
     Active Substance: SERTRALINE HYDROCHLORIDE
     Route: 065
  100. SERTRALINE HYDROCHLORIDE [Suspect]
     Active Substance: SERTRALINE HYDROCHLORIDE
  101. TRANYLCYPROMINE [Concomitant]
     Active Substance: TRANYLCYPROMINE
     Indication: Depression
  102. TRANYLCYPROMINE [Concomitant]
     Active Substance: TRANYLCYPROMINE
     Route: 065
  103. TRANYLCYPROMINE [Concomitant]
     Active Substance: TRANYLCYPROMINE
     Route: 065
  104. TRANYLCYPROMINE [Concomitant]
     Active Substance: TRANYLCYPROMINE

REACTIONS (2)
  - Therapy non-responder [Unknown]
  - Drug ineffective [Unknown]
